FAERS Safety Report 8061926-3 (Version None)
Quarter: 2012Q1

REPORT INFORMATION
  Report Type: 
  Country: None (occurrence: None)
  Receive Date: 20120117
  Receipt Date: 20120110
  Transmission Date: 20120608
  Serious: Yes (Other)
  Sender: FDA-Public Use
  Company Number: TPA2012A00210

PATIENT
  Sex: Female

DRUGS (1)
  1. ACTOS [Suspect]
     Indication: TYPE 2 DIABETES MELLITUS

REACTIONS (9)
  - UTERINE CANCER [None]
  - GASTROINTESTINAL DISORDER [None]
  - ABDOMINAL PAIN LOWER [None]
  - DECREASED APPETITE [None]
  - DYSPAREUNIA [None]
  - VAGINAL HAEMORRHAGE [None]
  - BLOOD URINE PRESENT [None]
  - DYSURIA [None]
  - PELVIC PAIN [None]
